FAERS Safety Report 12546589 (Version 1)
Quarter: 2016Q3

REPORT INFORMATION
  Report Type: Spontaneous
  Country: IR (occurrence: IR)
  Receive Date: 20160711
  Receipt Date: 20160711
  Transmission Date: 20161109
  Serious: Yes (Other)
  Sender: FDA-Public Use
  Company Number: IR-MYLANLABS-2016M1028553

PATIENT

DRUGS (1)
  1. PHENYTOIN. [Suspect]
     Active Substance: PHENYTOIN
     Indication: PRODUCT USED FOR UNKNOWN INDICATION
     Dosage: 4 ML OF PHENYTOIN SODIUM SOLUTION 200 MG
     Route: 013

REACTIONS (4)
  - Wrong drug administered [Recovered/Resolved]
  - Arterial thrombosis [Recovered/Resolved]
  - Gangrene [Recovered/Resolved]
  - Compartment syndrome [Recovered/Resolved]
